FAERS Safety Report 4678362-X (Version None)
Quarter: 2005Q2

REPORT INFORMATION
  Report Type: 
  Country: None (occurrence: None)
  Receive Date: 20050601
  Receipt Date: 20050523
  Transmission Date: 20051028
  Serious: Yes (Other)
  Sender: FDA-Public Use
  Company Number: PHEH2005US05834

PATIENT
  Age: 80 Year
  Sex: Male

DRUGS (2)
  1. ZOMETA [Suspect]
     Indication: PROSTATE CANCER METASTATIC
     Dosage: 4 MG, QMO
     Dates: start: 20050201
  2. TAXOL [Concomitant]

REACTIONS (4)
  - BONE DISORDER [None]
  - GINGIVAL DISORDER [None]
  - OSTEONECROSIS [None]
  - PAIN IN JAW [None]
